FAERS Safety Report 8936740 (Version 3)
Quarter: 2013Q1

REPORT INFORMATION
  Report Type: Spontaneous
  Country: BR (occurrence: BR)
  Receive Date: 20121130
  Receipt Date: 20130118
  Transmission Date: 20140127
  Serious: Yes (Other)
  Sender: FDA-Public Use
  Company Number: BR-ASTRAZENECA-2012SE89547

PATIENT
  Sex: Female

DRUGS (4)
  1. NEXIUM [Suspect]
     Indication: DYSPEPSIA
     Route: 048
     Dates: start: 201211
  2. NEXIUM [Suspect]
     Indication: DYSPEPSIA
     Route: 048
     Dates: start: 201211
  3. AMPICILLIN [Suspect]
     Indication: INFECTION PROPHYLAXIS
     Route: 048
     Dates: start: 201211, end: 20121127
  4. NATELE [Suspect]
     Route: 048
     Dates: start: 201206

REACTIONS (4)
  - Exposure during pregnancy [Unknown]
  - Amniorrhoea [Unknown]
  - Dyspepsia [Unknown]
  - Drug ineffective [Unknown]
